FAERS Safety Report 6788148 (Version 2)
Quarter: 2013Q1

REPORT INFORMATION
  Report Type: Spontaneous
  Country: KR (occurrence: KR)
  Receive Date: 20081015
  Receipt Date: 20130128
  Transmission Date: 20140127
  Serious: Yes (Hospitalization)
  Sender: FDA-Public Use
  Company Number: KR-JNJFOC-20081002888

PATIENT
  Age: 69 Year
  Sex: Female

DRUGS (4)
  1. TRAMADOL HYDROCHLORIDE [Suspect]
     Indication: PARAESTHESIA
     Route: 065
  2. GABAPENTIN [Suspect]
     Indication: PARAESTHESIA
     Route: 065
  3. GABAPENTIN [Suspect]
     Indication: PARAESTHESIA
     Route: 065
  4. GABAPENTIN [Suspect]
     Indication: PARAESTHESIA
     Route: 065

REACTIONS (1)
  - Myoclonus [Recovered/Resolved]
